FAERS Safety Report 7871371-9 (Version None)
Quarter: 2011Q4

REPORT INFORMATION
  Report Type: 
  Country: None (occurrence: None)
  Receive Date: 20111003
  Receipt Date: 20100817
  Transmission Date: 20120403
  Serious: Yes (Other)
  Sender: FDA-Public Use
  Company Number: 245560USA

PATIENT
  Sex: Female

DRUGS (5)
  1. MEDROXYPROGESTERONE ACETATE [Suspect]
  2. PROVELLA-14 [Suspect]
  3. MEDROXYPROGESTERONE ACETATE [Suspect]
  4. MEDROXYPROGESTERONE ACETATE [Suspect]
  5. CONJUGATED ESTROGENS [Suspect]

REACTIONS (1)
  - BREAST CANCER [None]
